FAERS Safety Report 26147700 (Version 3)
Quarter: 2025Q4

REPORT INFORMATION
  Report Type: Report from Study
  Country: US (occurrence: US)
  Receive Date: 20251211
  Receipt Date: 20251222
  Transmission Date: 20260118
  Serious: Yes (Other)
  Sender: ABBVIE
  Company Number: US-ABBVIE-6584302

PATIENT
  Age: 88 Year
  Sex: Male

DRUGS (1)
  1. CREON [Suspect]
     Active Substance: PANCRELIPASE AMYLASE\PANCRELIPASE LIPASE\PANCRELIPASE PROTEASE
     Indication: Product used for unknown indication
     Route: 048
     Dates: start: 20251015

REACTIONS (12)
  - Haematological malignancy [Not Recovered/Not Resolved]
  - Abdominal pain upper [Recovered/Resolved]
  - Haematochezia [Unknown]
  - Dyspnoea [Unknown]
  - Diarrhoea [Unknown]
  - Hepatic cancer [Unknown]
  - Vomiting [Unknown]
  - Throat tightness [Unknown]
  - Localised oedema [Unknown]
  - Large intestine infection [Unknown]
  - Pancreatic carcinoma [Unknown]
  - Abdominal pain upper [Not Recovered/Not Resolved]

NARRATIVE: CASE EVENT DATE: 20250101
